FAERS Safety Report 9086051 (Version 1)
Quarter: 2013Q1

REPORT INFORMATION
  Report Type: Report from Study
  Country: US (occurrence: US)
  Receive Date: 20130131
  Receipt Date: 20130131
  Transmission Date: 20140127
  Serious: No
  Sender: FDA-Public Use
  Company Number: US-ABBOTT-12P-163-0997393-00

PATIENT
  Age: 60 Year
  Sex: Female

DRUGS (6)
  1. HUMIRA [Suspect]
     Indication: CROHN^S DISEASE
     Dates: start: 20120713
  2. LIALDA [Concomitant]
     Indication: CROHN^S DISEASE
     Dosage: 1.2 GM X 4 TABLETS IN A.M.
  3. DICYCLOMINE [Concomitant]
     Indication: ABDOMINAL PAIN UPPER
     Dosage: 10 MG X 1 AT EACH MEAL AND AT BEDTIME AS NEEDED
     Route: 048
  4. AMLODIPINE/BENAZEPRIL [Concomitant]
     Indication: BLOOD PRESSURE
     Dosage: 5/10 MG FOR BLOOD PRESSURE GREATER THAN 13/70
     Route: 048
  5. MULTIVITAMIN [Concomitant]
     Indication: PRODUCT USED FOR UNKNOWN INDICATION
     Dosage: 1 DAILY
     Route: 048
  6. FISH OIL [Concomitant]
     Indication: PRODUCT USED FOR UNKNOWN INDICATION
     Dosage: 1 DAILY
     Route: 048

REACTIONS (2)
  - Local swelling [Recovered/Resolved]
  - Pain in extremity [Recovered/Resolved]
